FAERS Safety Report 7911118-0 (Version None)
Quarter: 2011Q4

REPORT INFORMATION
  Report Type: 
  Country: None (occurrence: None)
  Receive Date: 20111109
  Receipt Date: 20111025
  Transmission Date: 20120403
  Serious: Yes (Death)
  Sender: FDA-Public Use
  Company Number: FK201102506

PATIENT
  Age: 29 Year
  Sex: Female

DRUGS (1)
  1. PROPOFOL [Suspect]
     Indication: INDUCTION OF ANAESTHESIA

REACTIONS (13)
  - PULMONARY OEDEMA [None]
  - MENTAL STATUS CHANGES [None]
  - CYANOSIS [None]
  - VENTRICULAR FIBRILLATION [None]
  - BLOOD CHLORIDE DECREASED [None]
  - CARDIO-RESPIRATORY ARREST [None]
  - ANURIA [None]
  - MATERNAL EXPOSURE DURING DELIVERY [None]
  - HYPERKALAEMIA [None]
  - OXYGEN SATURATION DECREASED [None]
  - BLOOD SODIUM DECREASED [None]
  - ELECTROCARDIOGRAM T WAVE AMPLITUDE INCREASED [None]
  - BLOOD PRESSURE DECREASED [None]
